FAERS Safety Report 4274585-2 (Version None)
Quarter: 2004Q1

REPORT INFORMATION
  Report Type: 
  Country: None (occurrence: None)
  Receive Date: 20040115
  Receipt Date: 20040105
  Transmission Date: 20041129
  Serious: Yes (Congenital Anomaly)
  Sender: FDA-Public Use
  Company Number: 2004000977

PATIENT
  Sex: Male

DRUGS (1)
  1. LUSTRAL (SERTRALINE) [Suspect]
     Indication: ILL-DEFINED DISORDER
     Dosage: 50 MG (DAILY)

REACTIONS (2)
  - CLEFT PALATE [None]
  - MATERNAL DRUGS AFFECTING FOETUS [None]
